FAERS Safety Report 18800122 (Version 2)
Quarter: 2021Q2

REPORT INFORMATION
  Report Type: Spontaneous
  Country: US (occurrence: US)
  Receive Date: 20210128
  Receipt Date: 20210503
  Transmission Date: 20210717
  Serious: Yes (Hospitalization, Other)
  Sender: FDA-Public Use
  Company Number: US-NOVOPROD-782162

PATIENT
  Age: 65 Year
  Sex: Male
  Weight: 93.89 kg

DRUGS (28)
  1. NOVOLOG [Suspect]
     Active Substance: INSULIN ASPART
     Indication: TYPE 2 DIABETES MELLITUS
     Dosage: 10 IU, TID
     Route: 058
     Dates: start: 20201212
  2. ARIPIPRAZOLE. [Concomitant]
     Active Substance: ARIPIPRAZOLE
     Indication: PRODUCT USED FOR UNKNOWN INDICATION
     Dosage: 5 MG, QD
     Route: 048
  3. PANTOPRAZOLE [Concomitant]
     Active Substance: PANTOPRAZOLE
     Indication: PRODUCT USED FOR UNKNOWN INDICATION
     Dosage: TAKE 1 TABLET BY MOUTH DAILY
     Route: 048
  4. ALBUTEROL SULFATE HFA [Concomitant]
     Active Substance: ALBUTEROL SULFATE
     Indication: DYSPNOEA
  5. LACTULOSE. [Concomitant]
     Active Substance: LACTULOSE
     Indication: AMMONIA INCREASED
     Dosage: TAKE 30 MLS BY MOUTH DAILY
     Route: 065
  6. SERTRALINE [Concomitant]
     Active Substance: SERTRALINE HYDROCHLORIDE
     Indication: PRODUCT USED FOR UNKNOWN INDICATION
     Dosage: TAKE 1 TABLET BY MOUTH ONCE DAILY
     Route: 048
  7. DONEPEZIL. [Concomitant]
     Active Substance: DONEPEZIL
     Indication: PRODUCT USED FOR UNKNOWN INDICATION
     Dosage: 10 MG, QD
     Route: 048
  8. PYRIDOXINE [Concomitant]
     Active Substance: PYRIDOXINE
     Indication: PRODUCT USED FOR UNKNOWN INDICATION
     Dosage: TAKE 0.5 MG TABLETS BY MOUTH DAILY
     Route: 048
  9. FUROSEMIDE. [Concomitant]
     Active Substance: FUROSEMIDE
     Indication: PRODUCT USED FOR UNKNOWN INDICATION
     Dosage: 20 MG, QD (20 MG BY MOUTH DAILY)
     Route: 065
  10. TAMSULOSIN [Concomitant]
     Active Substance: TAMSULOSIN
     Indication: NEPHROLITHIASIS
     Dosage: TAKE 1 CAPSULE BY MOUTH DAILY
     Route: 048
  11. TRAZODONE [Concomitant]
     Active Substance: TRAZODONE HYDROCHLORIDE
     Indication: PRODUCT USED FOR UNKNOWN INDICATION
     Dosage: 50 MG TABLET BY MOUTH NIGHTLY
     Route: 048
  12. GLIMEPIRIDE. [Concomitant]
     Active Substance: GLIMEPIRIDE
     Indication: BLOOD GLUCOSE INCREASED
     Dosage: 1 TABLET BY MOUTH ONCE DAILY IF NEEDED
     Route: 048
  13. LORATADINE. [Concomitant]
     Active Substance: LORATADINE
     Indication: HYPERSENSITIVITY
     Dosage: 1 TABLET BY MOUTH DAILY AS NEEDED
     Route: 048
  14. MECLIZINE [Concomitant]
     Active Substance: MECLIZINE HYDROCHLORIDE
     Indication: DIZZINESS
     Dosage: AKE 1 TABLET BY MOUTH 3 TIMES DAILY AS NEEDED
     Route: 048
  15. OXCARBAZEPINE. [Concomitant]
     Active Substance: OXCARBAZEPINE
     Indication: PRODUCT USED FOR UNKNOWN INDICATION
     Dosage: TAKE 3 TABLETS BY MOUTH NIGHTLY
     Route: 048
  16. NOVOLOG [Suspect]
     Active Substance: INSULIN ASPART
     Dosage: 12 IU, TID
     Route: 058
  17. ALBUTEROL SULFATE HFA [Concomitant]
     Active Substance: ALBUTEROL SULFATE
     Indication: WHEEZING
     Dosage: 108 MCG/ACT INHALER, INHALE 2 PUFFS INTO THE LUNGS EVERY 6 HOURS AS NEEDED
     Route: 065
  18. LAMIVUDINE. [Concomitant]
     Active Substance: LAMIVUDINE
     Indication: PRODUCT USED FOR UNKNOWN INDICATION
     Dosage: 100 MG, QD
     Route: 048
  19. LISINOPRIL. [Concomitant]
     Active Substance: LISINOPRIL
     Indication: PRODUCT USED FOR UNKNOWN INDICATION
     Dosage: 1 TABLET BY MOUTH ONCE DAILY
     Route: 048
  20. PRIMIDONE. [Concomitant]
     Active Substance: PRIMIDONE
     Indication: PRODUCT USED FOR UNKNOWN INDICATION
     Dosage: TAKE 2 TABLETS BY MOUTH EVERY 8 HOURS
     Route: 048
  21. GABAPENTIN. [Concomitant]
     Active Substance: GABAPENTIN
     Indication: PRODUCT USED FOR UNKNOWN INDICATION
     Dosage: 300 MG, BID (BY MOUTH)
     Route: 048
  22. ISOSORBIDE MONONITRATE. [Concomitant]
     Active Substance: ISOSORBIDE MONONITRATE
     Indication: PRODUCT USED FOR UNKNOWN INDICATION
     Dosage: 1 TABLET BY MOUTH DAILY
     Route: 048
  23. VITAMIN B12 [Concomitant]
     Active Substance: CYANOCOBALAMIN
     Indication: PRODUCT USED FOR UNKNOWN INDICATION
     Dosage: TAKE 0.5 MG TABLETS BY MOUTH DAILY
     Route: 048
  24. VITAMIN D3 [Concomitant]
     Active Substance: CHOLECALCIFEROL
     Indication: PRODUCT USED FOR UNKNOWN INDICATION
     Dosage: 1 TABLET BY MOUTH DAILY
     Route: 048
  25. MARIJUANA [Concomitant]
     Active Substance: CANNABIS SATIVA SUBSP. INDICA TOP
     Indication: PRODUCT USED FOR UNKNOWN INDICATION
     Dosage: UNK
     Route: 065
  26. FLUTICASONE. [Concomitant]
     Active Substance: FLUTICASONE
     Indication: PRODUCT USED FOR UNKNOWN INDICATION
     Dosage: 50 MCG/ACT NASAL SPRAY, 1 SPRAY BY EACH NOSTRIL DAILY AS NEEDED
     Route: 045
  27. METOPROLOL TARTRATE. [Concomitant]
     Active Substance: METOPROLOL TARTRATE
     Indication: PRODUCT USED FOR UNKNOWN INDICATION
     Dosage: TAKE 1/2 TABLET AT BEDTIME
     Route: 065
  28. NITROGLYCERIN. [Concomitant]
     Active Substance: NITROGLYCERIN
     Indication: CHEST PAIN
     Dosage: PLACE 1 TABLET UNDER THE TONGUE EVERY 5 MINUTES AS NEEDED, MAX OF 3 TOTAL DOSES
     Route: 060

REACTIONS (11)
  - Injection site haemorrhage [Recovering/Resolving]
  - Blood glucose decreased [Unknown]
  - Small intestinal obstruction [Unknown]
  - Hepatocellular carcinoma [Unknown]
  - Injection site pain [Recovering/Resolving]
  - Blood glucose increased [Unknown]
  - Haemoglobin decreased [Recovered/Resolved]
  - Wrong technique in product usage process [Unknown]
  - Serum ferritin decreased [Recovered/Resolved]
  - Adjustment disorder with anxiety [Unknown]
  - Sleep disorder [Unknown]

NARRATIVE: CASE EVENT DATE: 202101
